FAERS Safety Report 8605828-X (Version None)
Quarter: 2012Q3

REPORT INFORMATION
  Report Type: 
  Country: None (occurrence: None)
  Receive Date: 20120820
  Receipt Date: 20120809
  Transmission Date: 20120928
  Serious: Yes (Hospitalization, Other)
  Sender: FDA-Public Use
  Company Number: US-GLAXOSMITHKLINE-A0989941A

PATIENT
  Sex: Male

DRUGS (10)
  1. ZOFRAN [Concomitant]
     Route: 064
  2. PREDNISONE TAB [Concomitant]
     Route: 064
  3. DEMEROL [Concomitant]
     Route: 064
  4. REGLAN [Concomitant]
     Route: 064
  5. MACROBID [Concomitant]
     Indication: URINARY TRACT INFECTION
     Route: 064
  6. PAXIL [Suspect]
     Indication: DEPRESSION
     Route: 064
  7. TRAZODONE HYDROCHLORIDE [Concomitant]
     Route: 064
  8. VISTARIL [Concomitant]
     Route: 064
  9. TYLENOL W/ CODEINE NO. 3 [Concomitant]
     Route: 064
  10. VICODIN [Concomitant]
     Route: 064

REACTIONS (3)
  - CRANIOSYNOSTOSIS [None]
  - SCAPHOCEPHALY [None]
  - FOETAL EXPOSURE DURING PREGNANCY [None]
